FAERS Safety Report 7334811 (Version 4)
Quarter: 2013Q3

REPORT INFORMATION
  Report Type: Report from Study
  Country: DE (occurrence: DE)
  Receive Date: 20100329
  Receipt Date: 20130801
  Transmission Date: 20140515
  Serious: Yes (Hospitalization)
  Sender: FDA-Public Use
  Company Number: PHHO2010DE04524

PATIENT
  Sex: 0

DRUGS (6)
  1. ZOLEDRONATE [Suspect]
     Indication: BREAST CANCER
     Dosage: 4 MG, EVERY 3 MONTHS FOR 2 YEARS
     Route: 042
     Dates: start: 20100212, end: 20100517
  2. TAMOXIFEN [Suspect]
     Indication: BREAST CANCER
     Dosage: 25 MG, QD
     Route: 048
     Dates: start: 20061016, end: 20111116
  3. VITAMIN D [Concomitant]
  4. CALCIUM [Concomitant]
  5. CIPRALEX [Concomitant]
     Indication: DEPRESSION
     Dosage: 20 MG, QD
     Route: 048
     Dates: start: 20080122
  6. TRIMIPRAMINE [Concomitant]
     Indication: DEPRESSION
     Dosage: 25 MG, QD
     Route: 048
     Dates: start: 20070801

REACTIONS (1)
  - Osteonecrosis [Recovered/Resolved with Sequelae]
